FAERS Safety Report 4865190-5 (Version None)
Quarter: 2005Q4

REPORT INFORMATION
  Report Type: 
  Country: None (occurrence: None)
  Receive Date: 20051223
  Receipt Date: 20051222
  Transmission Date: 20060501
  Serious: Yes (Other)
  Sender: FDA-Public Use
  Company Number: US-GLAXOSMITHKLINE-A0586843A

PATIENT
  Sex: Female

DRUGS (3)
  1. LEUKERAN [Suspect]
     Indication: CHRONIC LYMPHOCYTIC LEUKAEMIA
     Route: 048
     Dates: start: 20051201, end: 20051201
  2. COUMADIN [Concomitant]
  3. ANTIHYPERTENSIVE [Concomitant]

REACTIONS (1)
  - BLEEDING TIME PROLONGED [None]
